FAERS Safety Report 18647440 (Version 2)
Quarter: 2021Q1

REPORT INFORMATION
  Report Type: Report from Study
  Country: US (occurrence: US)
  Receive Date: 20201222
  Receipt Date: 20210315
  Transmission Date: 20210419
  Serious: Yes (Other)
  Sender: FDA-Public Use
  Company Number: US-GILEAD-2020-0509249

PATIENT
  Age: 65 Year
  Sex: Female
  Weight: 72.61 kg

DRUGS (22)
  1. TYVASO [Suspect]
     Active Substance: TREPROSTINIL
     Dosage: 18?54 UG, QID
     Route: 055
     Dates: start: 202004
  2. TYVASO [Suspect]
     Active Substance: TREPROSTINIL
     Dosage: 18 UG
     Route: 055
     Dates: start: 20200425
  3. FERROUS SULFATE. [Concomitant]
     Active Substance: FERROUS SULFATE
  4. PRINIVIL [Concomitant]
     Active Substance: LISINOPRIL
  5. TYVASO [Suspect]
     Active Substance: TREPROSTINIL
     Dosage: UNK
     Route: 055
     Dates: end: 2020
  6. LEVEMIR [Concomitant]
     Active Substance: INSULIN DETEMIR
  7. ZESTRIL [Concomitant]
     Active Substance: LISINOPRIL
  8. CRESTOR [Concomitant]
     Active Substance: ROSUVASTATIN CALCIUM
  9. IRON [Concomitant]
     Active Substance: IRON
  10. TYVASO [Suspect]
     Active Substance: TREPROSTINIL
     Dosage: 6 UNK
     Route: 055
     Dates: start: 2020
  11. DEMADEX [Concomitant]
     Active Substance: TORSEMIDE
  12. ACETYLSALICYLIC ACID [Concomitant]
     Active Substance: ASPIRIN
  13. AMBRISENTAN [Suspect]
     Active Substance: AMBRISENTAN
     Indication: PULMONARY ARTERIAL HYPERTENSION
     Dosage: UNK
     Route: 065
  14. TYVASO [Suspect]
     Active Substance: TREPROSTINIL
     Indication: PULMONARY ARTERIAL HYPERTENSION
     Dosage: 18 UG, TID
     Route: 055
     Dates: start: 20200421
  15. TADALAFIL. [Suspect]
     Active Substance: TADALAFIL
     Indication: PULMONARY ARTERIAL HYPERTENSION
     Dosage: 20 MG, QD
     Route: 048
     Dates: start: 20201001
  16. SILDENAFIL. [Suspect]
     Active Substance: SILDENAFIL
     Indication: PULMONARY ARTERIAL HYPERTENSION
     Dosage: 10 MG
     Route: 065
     Dates: start: 202009, end: 20201001
  17. TYVASO [Suspect]
     Active Substance: TREPROSTINIL
     Dosage: 12 UG, QD
     Route: 055
     Dates: start: 20200426
  18. COREG [Concomitant]
     Active Substance: CARVEDILOL
  19. KLOR?CON M20 [Concomitant]
     Active Substance: POTASSIUM CHLORIDE
  20. TYVASO [Suspect]
     Active Substance: TREPROSTINIL
     Dosage: UNK
     Route: 055
  21. TYVASO [Suspect]
     Active Substance: TREPROSTINIL
     Dosage: UNK
     Route: 055
  22. TYVASO [Suspect]
     Active Substance: TREPROSTINIL
     Dosage: 18 UG, QID
     Route: 055
     Dates: start: 2020

REACTIONS (22)
  - Oropharyngeal discomfort [Not Recovered/Not Resolved]
  - Abdominal distension [Unknown]
  - Respiratory disorder [Unknown]
  - Nasal discomfort [Recovering/Resolving]
  - Oropharyngeal pain [Unknown]
  - Seasonal allergy [Unknown]
  - Dry mouth [Unknown]
  - Drug intolerance [Unknown]
  - Vision blurred [Unknown]
  - Ascites [Unknown]
  - Jugular vein distension [Unknown]
  - Fatigue [Unknown]
  - Headache [Unknown]
  - Throat irritation [Recovering/Resolving]
  - Eye pain [Unknown]
  - Oedema peripheral [Unknown]
  - Diarrhoea [Unknown]
  - Chest pain [Unknown]
  - Dysphonia [Unknown]
  - Insomnia [Unknown]
  - Feeling abnormal [Unknown]
  - Dyspnoea [Unknown]
